FAERS Safety Report 24622616 (Version 1)
Quarter: 2024Q4

REPORT INFORMATION
  Report Type: Spontaneous
  Country: GB (occurrence: GB)
  Receive Date: 20241115
  Receipt Date: 20241115
  Transmission Date: 20250114
  Serious: Yes (Hospitalization, Disabling)
  Sender: BOEHRINGER INGELHEIM
  Company Number: GB-MLMSERVICE-20241101-PI248295-00080-1

PATIENT
  Sex: Female

DRUGS (8)
  1. PRAMIPEXOLE [Suspect]
     Active Substance: PRAMIPEXOLE\PRAMIPEXOLE DIHYDROCHLORIDE
     Indication: Parkinson^s disease
     Dosage: PRAMIPEXOLE (MIRAPEXIN) PROLONGED-RELEASE 2.1 MG, ONE TABLET ONCE DAILY
  2. STALEVO [Suspect]
     Active Substance: CARBIDOPA\ENTACAPONE\LEVODOPA
     Indication: Parkinson^s disease
     Dosage: STALEVO (LEVODOPA, CARBIDOPA, AND ENTACAPONE) 150/37.5/200 MG, ONE TABLET FIVE TIMES PER DAY
  3. SINEMET CR [Suspect]
     Active Substance: CARBIDOPA\LEVODOPA
     Indication: Parkinson^s disease
     Dosage: (CO-CARELDOPA) 50/200 MG, ONE TABLET TWICE PER DAY
  4. CARBIDOPA\LEVODOPA [Suspect]
     Active Substance: CARBIDOPA\LEVODOPA
     Indication: Parkinson^s disease
     Dosage: (CO-CARELDOPA) 125 MG (25/100 MG), TWO TABLETS TWICE PER DAY
  5. BENSERAZIDE HYDROCHLORIDE\LEVODOPA [Suspect]
     Active Substance: BENSERAZIDE HYDROCHLORIDE\LEVODOPA
     Indication: Parkinson^s disease
     Dosage: MADOPAR (CO-BENELDOPA) DISPERSIBLE 62.5 MG (12.5/50 MG), ONE TABLET FOUR TIMES PER DAY
  6. BENSERAZIDE HYDROCHLORIDE\LEVODOPA [Suspect]
     Active Substance: BENSERAZIDE HYDROCHLORIDE\LEVODOPA
     Indication: Analgesic therapy
  7. RASAGILINE [Suspect]
     Active Substance: RASAGILINE
     Indication: Parkinson^s disease
     Dosage: ONE TABLET ONCE DAILY
  8. AMANTADINE [Suspect]
     Active Substance: AMANTADINE
     Indication: Parkinson^s disease
     Dosage: AMANTADINE 100 MG, ONE TABLET ONCE DAILY

REACTIONS (5)
  - Dopamine dysregulation syndrome [Recovering/Resolving]
  - Intentional overdose [Recovered/Resolved]
  - Dystonia [Unknown]
  - Neck pain [Unknown]
  - Intentional product misuse [Recovered/Resolved]
